FAERS Safety Report 17970574 (Version 1)
Quarter: 2020Q3

REPORT INFORMATION
  Report Type: Spontaneous
  Country: SG (occurrence: SG)
  Receive Date: 20200702
  Receipt Date: 20200702
  Transmission Date: 20201103
  Serious: Yes (Other)
  Sender: FDA-Public Use
  Company Number: SG-INGENUS PHARMACEUTICALS, LLC-2020INF000102

PATIENT
  Age: 67 Year
  Sex: Male
  Weight: 48 kg

DRUGS (2)
  1. CARBOPLATIN. [Suspect]
     Active Substance: CARBOPLATIN
     Indication: OESOPHAGEAL SQUAMOUS CELL CARCINOMA
     Dosage: AREA UNDER CURVE 2 MG/ML PER MINUTE, 1 TIMES A WEEK
     Route: 065
  2. PACLITAXEL. [Suspect]
     Active Substance: PACLITAXEL
     Indication: OESOPHAGEAL SQUAMOUS CELL CARCINOMA
     Dosage: 50 MILLIGRAM/SQ. METER OF BODY SURFACE AREA, 1 TIMES A WEEK
     Route: 065

REACTIONS (2)
  - Tracheo-oesophageal fistula [Recovered/Resolved]
  - Oesophageal stenosis [Recovered/Resolved]
